FAERS Safety Report 24165102 (Version 3)
Quarter: 2024Q3

REPORT INFORMATION
  Report Type: Spontaneous
  Country: DE (occurrence: DE)
  Receive Date: 20240802
  Receipt Date: 20240828
  Transmission Date: 20241017
  Serious: Yes (Hospitalization, Other)
  Sender: NOVO NORDISK
  Company Number: DE-NOVOPROD-1246990

PATIENT
  Age: 75 Year
  Sex: Male
  Weight: 81.5 kg

DRUGS (12)
  1. OZEMPIC [Suspect]
     Active Substance: SEMAGLUTIDE
     Indication: Weight control
     Dosage: 1 MG, QW(FOR 3 MONTHS)
     Dates: end: 20240701
  2. OZEMPIC [Suspect]
     Active Substance: SEMAGLUTIDE
     Indication: Type 2 diabetes mellitus
     Dosage: UNK
  3. TAMSULOSIN [Concomitant]
     Active Substance: TAMSULOSIN
     Indication: Prostatic disorder
     Dosage: 0.4 MG (0-0-1-0)
  4. BISOPROLOL FUMARATE [Concomitant]
     Active Substance: BISOPROLOL FUMARATE
     Indication: Cardiac failure
     Dosage: 2.5 MG(0-0-1-0)
  5. BISOPROLOL FUMARATE [Concomitant]
     Active Substance: BISOPROLOL FUMARATE
     Dosage: 5 MG(1-0-0-0)
  6. ATORVASTATIN [Concomitant]
     Active Substance: ATORVASTATIN
     Indication: Lipids abnormal
     Dosage: 20 MG(0-0-0-1-0)
  7. METFORMIN HYDROCHLORIDE [Concomitant]
     Active Substance: METFORMIN HYDROCHLORIDE
     Indication: Type 2 diabetes mellitus
     Dosage: 1000 MG(0-0-1-0)
  8. CANDESARTAN CILEXETIL [Concomitant]
     Active Substance: CANDESARTAN CILEXETIL
     Indication: Blood pressure abnormal
     Dosage: 16 MG(1-0-0-0)
  9. ASPIRIN [Concomitant]
     Active Substance: ASPIRIN
     Indication: Anticoagulant therapy
     Dosage: UNK(1-0-0-0, AFTER BREAKFAST)
  10. AMLODIPIN Q-PHARM [Concomitant]
     Indication: Blood pressure abnormal
     Dosage: 5 G(0-0-1-0)
  11. TIMO-STULLN [Concomitant]
     Indication: Glaucoma
     Dosage: 0.5% UD EYE DROPS(1-0-1-0)
  12. DAPAGLIFLOZIN [Concomitant]
     Active Substance: DAPAGLIFLOZIN
     Indication: Type 2 diabetes mellitus
     Dosage: 10 MG(1-0-0-0)

REACTIONS (7)
  - Faecaloma [Unknown]
  - Constipation [Not Recovered/Not Resolved]
  - Constipation [Unknown]
  - Gastrooesophageal reflux disease [Unknown]
  - Gastritis haemorrhagic [Unknown]
  - Diverticulitis [Unknown]
  - Cholestasis [Unknown]

NARRATIVE: CASE EVENT DATE: 20240616
